FAERS Safety Report 5566354-8 (Version None)
Quarter: 2007Q4

REPORT INFORMATION
  Report Type: 
  Country: None (occurrence: None)
  Receive Date: 20071219
  Receipt Date: 20071210
  Transmission Date: 20080405
  Serious: Yes (Hospitalization)
  Sender: FDA-Public Use
  Company Number: AU-AMGEN-QUU250143

PATIENT
  Age: 87 Year
  Sex: Female
  Weight: 56 kg

DRUGS (6)
  1. NEULASTA [Suspect]
     Indication: CHEMOTHERAPY
     Route: 058
     Dates: start: 20070914, end: 20070914
  2. RITUXIMAB [Concomitant]
     Route: 042
     Dates: start: 20070913, end: 20070913
  3. CYCLOPHOSPHAMIDE [Concomitant]
     Route: 042
     Dates: start: 20070913, end: 20070913
  4. DOXORUBICIN HYDROCHLORIDE [Concomitant]
     Route: 042
     Dates: start: 20070913, end: 20070913
  5. VINCRISTINE SULFATE [Concomitant]
     Route: 042
     Dates: start: 20070913, end: 20070913
  6. PREDNISOLONE [Concomitant]

REACTIONS (2)
  - DRUG INEFFECTIVE [None]
  - FEBRILE NEUTROPENIA [None]
